FAERS Safety Report 9846305 (Version 3)
Quarter: 2014Q2

REPORT INFORMATION
  Report Type: Spontaneous
  Country: US (occurrence: US)
  Receive Date: 20140127
  Receipt Date: 20140408
  Transmission Date: 20141212
  Serious: Yes (Hospitalization)
  Sender: FDA-Public Use
  Company Number: US-BAYER-2014-013303

PATIENT
  Age: 77 Year
  Sex: Female

DRUGS (1)
  1. GADAVIST [Suspect]
     Indication: HEADACHE
     Dosage: UNK
     Dates: start: 20140108

REACTIONS (2)
  - Chest pain [None]
  - Urticaria [None]
